FAERS Safety Report 16183562 (Version 1)
Quarter: 2019Q2

REPORT INFORMATION
  Report Type: Spontaneous
  Country: ES (occurrence: ES)
  Receive Date: 20190411
  Receipt Date: 20190411
  Transmission Date: 20190711
  Serious: Yes (Other)
  Sender: FDA-Public Use
  Company Number: ES-TEVA-2019-ES-1035992

PATIENT
  Age: 72 Year
  Sex: Female

DRUGS (13)
  1. PULMICORT TURBUHALER [Concomitant]
     Active Substance: BUDESONIDE
     Indication: ASTHMA
     Dosage: NEBULIZATION: 2.5MG SALBUTAMOL +500 ATROVENT + PULMICORT + 0.5ML SSFF.
     Route: 055
     Dates: start: 20190128, end: 20190128
  2. DACORTIN 30 MG COMPRIMIDOS, 30 COMPRIMIDOS [Concomitant]
     Indication: ASTHMA
     Dosage: DACORTIN DESCENDING PATTERN
     Route: 048
     Dates: start: 20190128
  3. SALBUTAMOL (2297A) [Concomitant]
     Active Substance: ALBUTEROL
     Indication: ASTHMA
     Dosage: NEBULIZATION: 2.5MG SALBUTAMOL +500 ATROVENT + PULMICORT + 0.5ML SSFF.
     Route: 055
     Dates: start: 20190128, end: 20190128
  4. ENALAPRIL STADA 5 MG  COMPRIMIDOS EFG, 60 COMPRIMIDOS [Concomitant]
  5. ATROVENT [Concomitant]
     Active Substance: IPRATROPIUM BROMIDE
     Indication: ASTHMA
     Dosage: 500 MCG;NEBULIZATION: 2.5MG SALBUTAMOL +500 ATROVENT + PULMICORT + 0.5ML SSFF.
     Route: 055
     Dates: start: 20190128, end: 20190128
  6. METFORMINA KERN PHARMA 850 MG COMPRIMIDOS RECUBIERTOS CON PELICULA EFG [Concomitant]
     Indication: TYPE 2 DIABETES MELLITUS
  7. NOLOTIL 575 MG CAPSULAS DURAS, 20 C?PSULAS [Concomitant]
     Active Substance: METAMIZOLE MAGNESIUM
  8. AMOXICILINA/ACIDO CLAVULANICO 500 MG/ 125 MG SOLUCION/SUSPENSION ORAL [Suspect]
     Active Substance: AMOXICILLIN\CLAVULANIC ACID
     Indication: ASTHMA
     Dosage: 3 DOSAGE FORMS DAILY; 1/8 8 DAYS,FORM STRENGTH:500MG/125 MG
     Route: 048
     Dates: start: 20190128, end: 201902
  9. OMEPRAZOL KERN PHARMA 20 MG CAPSULAS DURAS GASTRORRESISTENTES EFG , 28 [Concomitant]
  10. URBASON 40MG IM [Concomitant]
     Indication: ASTHMA
     Dosage: URBASON 40MG IM
     Route: 030
     Dates: start: 20190128, end: 20190128
  11. FLUIDASA 5 MG/ML SOLUCION ORAL, 1 FRASCO DE 250 ML [Concomitant]
     Indication: ASTHMA
     Dosage: 3 CURIES DAILY; 1/8 7 DAYS
     Route: 048
     Dates: start: 20190128
  12. ALPRAZOLAM NORMON 0,5 MG COMPRIMIDOS EFG, 30 COMPRIMIDOS [Concomitant]
  13. CITALOPRAM 20 MG 28 COMPRIMIDOS [Concomitant]

REACTIONS (2)
  - Genital candidiasis [Recovered/Resolved]
  - Oral candidiasis [Recovered/Resolved]

NARRATIVE: CASE EVENT DATE: 201902
